FAERS Safety Report 6033296-3 (Version None)
Quarter: 2009Q1

REPORT INFORMATION
  Report Type: 
  Country: None (occurrence: None)
  Receive Date: 20090109
  Receipt Date: 20090106
  Transmission Date: 20090719
  Serious: Yes (Hospitalization)
  Sender: FDA-Public Use
  Company Number: US-BRISTOL-MYERS SQUIBB COMPANY-14461990

PATIENT
  Age: 80 Year
  Sex: Male
  Weight: 93 kg

DRUGS (4)
  1. ERBITUX [Suspect]
     Indication: OESOPHAGEAL CARCINOMA
     Dosage: DRUG INTERRUPTED FOR 7DAYS.START DATE OF COURSE:02DEC08,ASSOCIATED WITH:26DEC08.
     Dates: start: 20081223, end: 20081223
  2. TAXOL [Suspect]
     Indication: OESOPHAGEAL CARCINOMA
     Dosage: DRUG INTERRUPTED FOR 7DAYS.START DATE OF COURSE:02DEC08,ASSOCIATED WITH:26DEC08.
     Dates: start: 20081223, end: 20081223
  3. CISPLATIN [Suspect]
     Indication: OESOPHAGEAL CARCINOMA
     Dosage: DRUG INTERRUPTED FOR 7DAYS.START DATE OF COURSE:02DEC08,ASSOCIATED WITH:26DEC08.
     Dates: start: 20081223, end: 20081223
  4. RADIATION THERAPY [Suspect]
     Indication: OESOPHAGEAL CARCINOMA
     Dosage: 1DOSAGE FORM=GY;NO OF FRACTIONS:28,NO OF ELAPSED DAYS:0
     Dates: start: 20081231, end: 20081231

REACTIONS (4)
  - DEHYDRATION [None]
  - HYPONATRAEMIA [None]
  - PERIPHERAL MOTOR NEUROPATHY [None]
  - WHITE BLOOD CELL COUNT DECREASED [None]
